FAERS Safety Report 24376629 (Version 2)
Quarter: 2024Q4

REPORT INFORMATION
  Report Type: Spontaneous
  Country: FI (occurrence: FI)
  Receive Date: 20240930
  Receipt Date: 20241004
  Transmission Date: 20250115
  Serious: Yes (Other)
  Sender: INSUD PHARMA
  Company Number: FI-EXELTIS PHARMACEUTICAL HOLDING, S.L.-2409FI07404

PATIENT
  Age: 38 Year
  Sex: Female
  Weight: 62 kg

DRUGS (3)
  1. DROSPIRENONE [Suspect]
     Active Substance: DROSPIRENONE
     Indication: Premenstrual syndrome
     Dosage: 4 MILLIGRAM, QD
     Dates: start: 20240904, end: 20240911
  2. DROSPIRENONE [Suspect]
     Active Substance: DROSPIRENONE
     Indication: Menstrual cycle management
  3. MIRENA [Concomitant]
     Active Substance: LEVONORGESTREL
     Dosage: UNK
     Dates: start: 201908

REACTIONS (3)
  - Arrhythmia [Recovered/Resolved]
  - Product use in unapproved indication [Recovered/Resolved]
  - Anxiety [Recovered/Resolved]
